FAERS Safety Report 9977662 (Version 1)
Quarter: 2014Q1

REPORT INFORMATION
  Report Type: Report from Study
  Country: US (occurrence: US)
  Receive Date: 20140306
  Receipt Date: 20140306
  Transmission Date: 20141002
  Serious: No
  Sender: FDA-Public Use
  Company Number: US-ABBVIE-13P-163-1163273-00

PATIENT
  Age: 54 Year
  Sex: Female
  Weight: 49.49 kg

DRUGS (4)
  1. HUMIRA [Suspect]
     Indication: RHEUMATOID ARTHRITIS
     Route: 058
     Dates: start: 2008, end: 201305
  2. HUMIRA [Suspect]
     Route: 058
     Dates: start: 201305
  3. METHOTREXATE [Concomitant]
     Indication: RHEUMATOID ARTHRITIS
  4. PREDNISONE [Concomitant]
     Indication: RHEUMATOID ARTHRITIS

REACTIONS (4)
  - Glassy eyes [Recovered/Resolved]
  - Increased upper airway secretion [Recovered/Resolved]
  - Nasopharyngitis [Recovered/Resolved]
  - Mobility decreased [Not Recovered/Not Resolved]
